FAERS Safety Report 9256970 (Version 1)
Quarter: 2013Q2

REPORT INFORMATION
  Report Type: Spontaneous
  Country: FR (occurrence: None)
  Receive Date: 20130423
  Receipt Date: 20130423
  Transmission Date: 20140414
  Serious: Yes (Hospitalization)
  Sender: FDA-Public Use
  Company Number: GER/FRA/13/0029092

PATIENT
  Age: 97 Year
  Sex: Male
  Weight: 54.8 kg

DRUGS (5)
  1. CLOPIDOGREL [Suspect]
     Indication: PRODUCT USED FOR UNKNOWN INDICATION
     Dosage: 75 MG, 1 IN 1 D, ORAL
     Route: 048
     Dates: end: 20130206
  2. ARTOTEC [Suspect]
     Indication: SCIATICA
     Dosage: 1 DOSAGE FORMS, 2 IN 1 D, ORAL
     Route: 048
     Dates: start: 20130205, end: 20130206
  3. LAMALINE (LAMALINE) [Concomitant]
  4. PRAXILENE (NAFTIDROFURYL OXALATE) [Concomitant]
  5. FONX (OXICONAZOLE NITRATE) [Concomitant]

REACTIONS (3)
  - General physical condition abnormal [None]
  - Haematemesis [None]
  - Renal failure acute [None]
